FAERS Safety Report 14533722 (Version 1)
Quarter: 2018Q1

REPORT INFORMATION
  Report Type: Report from Study
  Country: None (occurrence: CA)
  Receive Date: 20180215
  Receipt Date: 20180215
  Transmission Date: 20180509
  Serious: Yes (Other)
  Sender: FDA-Public Use
  Company Number: CA-ABBVIE-18K-028-2251736-00

PATIENT
  Sex: Female

DRUGS (1)
  1. HUMIRA [Suspect]
     Active Substance: ADALIMUMAB
     Indication: PSORIATIC ARTHROPATHY
     Route: 058
     Dates: start: 20151114

REACTIONS (10)
  - Blood cholesterol increased [Unknown]
  - Overweight [Unknown]
  - Pulse abnormal [Unknown]
  - Diabetic neuropathy [Unknown]
  - Pain in extremity [Unknown]
  - Blood potassium increased [Unknown]
  - Mobility decreased [Unknown]
  - Arthralgia [Recovered/Resolved]
  - Arterial occlusive disease [Unknown]
  - Arthralgia [Recovered/Resolved]

NARRATIVE: CASE EVENT DATE: 2018
